FAERS Safety Report 5114332-5 (Version None)
Quarter: 2006Q3

REPORT INFORMATION
  Report Type: 
  Country: None (occurrence: None)
  Receive Date: 20060731
  Receipt Date: 20060504
  Transmission Date: 20061208
  Serious: No
  Sender: FDA-Public Use
  Company Number: 2006PV013265

PATIENT
  Age: 53 Year
  Sex: Female
  Weight: 136.5327 kg

DRUGS (4)
  1. BYETTA [Suspect]
     Indication: DIABETES MELLITUS NON-INSULIN-DEPENDENT
     Dosage: 5 MCG;BID;SC
     Route: 058
     Dates: start: 20060427
  2. METFORMIN [Concomitant]
  3. GLIPIZIDE [Concomitant]
  4. AVANDIA [Concomitant]

REACTIONS (5)
  - DRUG INEFFECTIVE [None]
  - INJECTION SITE BRUISING [None]
  - INJECTION SITE PAIN [None]
  - INJECTION SITE SWELLING [None]
  - MENTAL IMPAIRMENT [None]
